FAERS Safety Report 9805699 (Version 2)
Quarter: 2014Q2

REPORT INFORMATION
  Report Type: Spontaneous
  Country: GB (occurrence: GB)
  Receive Date: 20140109
  Receipt Date: 20140410
  Transmission Date: 20141212
  Serious: Yes (Death)
  Sender: FDA-Public Use
  Company Number: GB-B.I. PHARMACEUTICALS,INC./RIDGEFIELD-2014-BI-00818UK

PATIENT
  Age: 77 Year
  Sex: Female
  Weight: 51.7 kg

DRUGS (4)
  1. PRADAXA [Suspect]
     Indication: CEREBROVASCULAR ACCIDENT PROPHYLAXIS
     Dosage: 300 MG
     Route: 048
     Dates: start: 20131106, end: 20131128
  2. ATENOLOL [Concomitant]
     Dosage: 50 MG
     Route: 048
     Dates: start: 20060904
  3. OMEPRAZOLE [Concomitant]
     Dosage: 20 MG
     Route: 048
     Dates: start: 20070222
  4. ROSUVASTATIN [Concomitant]
     Dosage: 5 MG
     Route: 048
     Dates: start: 20130808

REACTIONS (1)
  - Haemorrhage intracranial [Fatal]
